FAERS Safety Report 9475163 (Version 1)
Quarter: 2013Q3

REPORT INFORMATION
  Report Type: Spontaneous
  Country: GB (occurrence: GB)
  Receive Date: 20130824
  Receipt Date: 20130824
  Transmission Date: 20140515
  Serious: Yes (Other)
  Sender: FDA-Public Use
  Company Number: PHHY2013GB089227

PATIENT
  Age: 84 Year
  Sex: Male

DRUGS (1)
  1. TAMSULOSIN [Suspect]
     Indication: PROSTATISM
     Dosage: 400 MG, QD
     Dates: start: 20130723, end: 20130731

REACTIONS (1)
  - Visual acuity reduced [Recovered/Resolved]
